FAERS Safety Report 6707188 (Version 3)
Quarter: 2020Q3

REPORT INFORMATION
  Report Type: Report from Study
  Country: US (occurrence: US)
  Receive Date: 20080723
  Receipt Date: 20080905
  Transmission Date: 20201105
  Serious: Yes (Death, Hospitalization)
  Sender: FDA-Public Use
  Company Number: US-ROCHE-575783

PATIENT
  Age: 85 Year
  Sex: Male
  Weight: 67.1 kg

DRUGS (8)
  1. IBANDRONIC ACID. [Suspect]
     Active Substance: IBANDRONIC ACID
     Indication: OSTEOPOROSIS
     Route: 065
     Dates: start: 200707, end: 200806
  2. UNSPECIFIED INGREDIENT [Concomitant]
     Active Substance: UNSPECIFIED INGREDIENT
     Dosage: DRUG: NEBULIZER
  3. COUMADIN [Concomitant]
     Active Substance: WARFARIN SODIUM
  4. OXYGEN. [Concomitant]
     Active Substance: OXYGEN
  5. UNSPECIFIED INGREDIENT [Concomitant]
     Active Substance: UNSPECIFIED INGREDIENT
  6. ARICEPT [Concomitant]
     Active Substance: DONEPEZIL HYDROCHLORIDE
     Indication: DEMENTIA
  7. LASIX [Concomitant]
     Active Substance: FUROSEMIDE
  8. PROSCAR [Concomitant]
     Active Substance: FINASTERIDE

REACTIONS (2)
  - Dysphagia [Unknown]
  - Pneumonia [Fatal]

NARRATIVE: CASE EVENT DATE: 20070801
